FAERS Safety Report 15917886 (Version 10)
Quarter: 2019Q3

REPORT INFORMATION
  Report Type: Spontaneous
  Country: US (occurrence: US)
  Receive Date: 20190205
  Receipt Date: 20190725
  Transmission Date: 20191004
  Serious: Yes (Other)
  Sender: FDA-Public Use
  Company Number: US-PFIZER INC-2019046019

PATIENT
  Age: 59 Year
  Sex: Female
  Weight: 54 kg

DRUGS (1)
  1. IBRANCE [Suspect]
     Active Substance: PALBOCICLIB
     Indication: BREAST CANCER FEMALE
     Dosage: 125 MG, CYCLIC (DAILY, 21 DAYS ON/7 DAYS OFF; DAY 1-21 OF 28 DAY CYCLE)
     Route: 048
     Dates: start: 20190131

REACTIONS (39)
  - Cough [Not Recovered/Not Resolved]
  - Muscular weakness [Not Recovered/Not Resolved]
  - Skin exfoliation [Unknown]
  - Contusion [Unknown]
  - Bone pain [Recovering/Resolving]
  - Pyrexia [Recovered/Resolved]
  - Migraine [Recovered/Resolved]
  - Insomnia [Unknown]
  - Lacrimation increased [Unknown]
  - Bedridden [Unknown]
  - Condition aggravated [Not Recovered/Not Resolved]
  - Weight decreased [Unknown]
  - Vomiting [Recovering/Resolving]
  - Eating disorder [Unknown]
  - Pneumonia [Recovering/Resolving]
  - Product dose omission [Unknown]
  - Headache [Recovered/Resolved]
  - Muscle spasms [Unknown]
  - Madarosis [Unknown]
  - Dyspnoea exertional [Unknown]
  - Fatigue [Not Recovered/Not Resolved]
  - Constipation [Unknown]
  - Hypoaesthesia [Unknown]
  - Nausea [Unknown]
  - Fall [Unknown]
  - Appetite disorder [Not Recovered/Not Resolved]
  - Nasopharyngitis [Recovering/Resolving]
  - Malaise [Unknown]
  - Neoplasm progression [Unknown]
  - Alopecia [Unknown]
  - Poor quality sleep [Unknown]
  - Fluid retention [Unknown]
  - Blood potassium decreased [Unknown]
  - Pain in extremity [Not Recovered/Not Resolved]
  - Gastroenteritis viral [Recovering/Resolving]
  - Musculoskeletal pain [Unknown]
  - Myalgia [Recovering/Resolving]
  - Decreased appetite [Unknown]
  - Pain [Unknown]

NARRATIVE: CASE EVENT DATE: 2019
